FAERS Safety Report 4362908-5 (Version None)
Quarter: 2004Q2

REPORT INFORMATION
  Report Type: 
  Country: None (occurrence: None)
  Receive Date: 20040518
  Receipt Date: 20040507
  Transmission Date: 20050107
  Serious: Yes (Death)
  Sender: FDA-Public Use
  Company Number: 2004020469

PATIENT
  Age: 89 Year
  Sex: Male

DRUGS (7)
  1. AMLODIPINE [Suspect]
     Indication: HYPERTENSION
     Dosage: 5 MG (5 MG, 1 IN 1 D), ORAL
     Route: 048
     Dates: start: 20040309, end: 20040301
  2. FELODIPINE [Concomitant]
  3. PANCREATIN TRIPLE STRENGTH CAP [Concomitant]
  4. GLYBURIDE [Concomitant]
  5. HEPARIN CALCIUM [Concomitant]
  6. ZOLPIDEM (ZOLPIDEM) [Concomitant]
  7. PREDNISONE [Concomitant]

REACTIONS (1)
  - HAEMOLYTIC ANAEMIA [None]
